FAERS Safety Report 23615367 (Version 1)
Quarter: 2024Q1

REPORT INFORMATION
  Report Type: Spontaneous
  Country: US (occurrence: US)
  Receive Date: 20240311
  Receipt Date: 20240311
  Transmission Date: 20240410
  Serious: No
  Sender: FDA-Public Use
  Company Number: US-ALKEM LABORATORIES LIMITED-US-ALKEM-2023-15596

PATIENT
  Age: 37 Year
  Sex: Female

DRUGS (12)
  1. VANCOMYCIN [Suspect]
     Active Substance: VANCOMYCIN
     Indication: Retinitis
     Dosage: UNK (1 MG /0.1 ML) (INJECTION)
  2. VANCOMYCIN [Suspect]
     Active Substance: VANCOMYCIN
     Indication: Vitritis
  3. CEFTAZIDIME [Suspect]
     Active Substance: CEFTAZIDIME
     Indication: Retinitis
     Dosage: UNK (2.25 MG/0.1 ML), (INJECTION)
  4. CEFTAZIDIME [Suspect]
     Active Substance: CEFTAZIDIME
     Indication: Vitritis
  5. FLUCONAZOLE [Suspect]
     Active Substance: FLUCONAZOLE
     Indication: Retinitis
     Dosage: UNK (ORAL)
     Route: 048
  6. FLUCONAZOLE [Suspect]
     Active Substance: FLUCONAZOLE
     Indication: Vitritis
  7. VALACYCLOVIR [Suspect]
     Active Substance: VALACYCLOVIR HYDROCHLORIDE
     Indication: Retinitis
     Dosage: UNK (ORAL)
     Route: 048
  8. VALACYCLOVIR [Suspect]
     Active Substance: VALACYCLOVIR HYDROCHLORIDE
     Indication: Vitritis
  9. VORICONAZOLE [Concomitant]
     Active Substance: VORICONAZOLE
     Indication: Vitritis
     Dosage: UNK (MULTIPLE TIMES GIVEN AS INJECTION)
  10. VORICONAZOLE [Concomitant]
     Active Substance: VORICONAZOLE
     Indication: Retinitis
     Dosage: 200 MILLIGRAM, BID (TWICE DAILY)
     Route: 048
  11. SULFAMETHOXAZOLE\TRIMETHOPRIM [Concomitant]
     Active Substance: SULFAMETHOXAZOLE\TRIMETHOPRIM
     Indication: Retinitis
     Dosage: UNK (160-180 MG), BID (TWICE DAILY)
     Route: 065
  12. SULFAMETHOXAZOLE\TRIMETHOPRIM [Concomitant]
     Active Substance: SULFAMETHOXAZOLE\TRIMETHOPRIM
     Indication: Vitritis

REACTIONS (1)
  - Treatment failure [Unknown]
